FAERS Safety Report 11935044 (Version 3)
Quarter: 2016Q1

REPORT INFORMATION
  Report Type: Spontaneous
  Country: US (occurrence: US)
  Receive Date: 20160121
  Receipt Date: 20160217
  Transmission Date: 20160526
  Serious: Yes (Death)
  Sender: FDA-Public Use
  Company Number: US-009507513-1601USA006403

PATIENT
  Sex: Male

DRUGS (2)
  1. EMEND [Suspect]
     Active Substance: APREPITANT
     Indication: NAUSEA
     Dosage: UNK
     Route: 048
  2. EMEND [Suspect]
     Active Substance: APREPITANT
     Indication: VOMITING

REACTIONS (1)
  - Death [Fatal]
